FAERS Safety Report 14067532 (Version 1)
Quarter: 2017Q4

REPORT INFORMATION
  Report Type: Spontaneous
  Country: CO (occurrence: CO)
  Receive Date: 20171010
  Receipt Date: 20171010
  Transmission Date: 20180321
  Serious: Yes (Other)
  Sender: FDA-Public Use
  Company Number: CO-ORPHAN EUROPE-2029379

PATIENT
  Age: 22 Month
  Sex: Female
  Weight: 14.5 kg

DRUGS (15)
  1. RIBOFLAVINA [Concomitant]
  2. RISPERIDONA [Concomitant]
     Active Substance: RISPERIDONE
  3. PEG [Concomitant]
     Active Substance: POLYETHYLENE GLYCOLS
  4. TIAMINA [Concomitant]
  5. CARBAGLU [Suspect]
     Active Substance: CARGLUMIC ACID
     Indication: PRODUCT USED FOR UNKNOWN INDICATION
  6. OMEPRAZOLE. [Concomitant]
     Active Substance: OMEPRAZOLE
  7. ACIDO FOLICO [Concomitant]
     Active Substance: CYANOCOBALAMIN\FOLIC ACID\PYRIDOXINE HYDROCHLORIDE
  8. CARNITINA [Concomitant]
  9. MELATONINA [Concomitant]
  10. LEVETIRACETAM. [Concomitant]
     Active Substance: LEVETIRACETAM
  11. DIFENHIDRAMINA [Concomitant]
  12. PIRIDOXINA [Concomitant]
  13. L-ARGININE [Concomitant]
     Active Substance: ARGININE
  14. DOMPERIDONA [Concomitant]
  15. SODIUM BENZOATE [Concomitant]
     Active Substance: SODIUM BENZOATE

REACTIONS (1)
  - Vomiting [Not Recovered/Not Resolved]

NARRATIVE: CASE EVENT DATE: 20170803
